FAERS Safety Report 4854715-1 (Version None)
Quarter: 2005Q4

REPORT INFORMATION
  Report Type: 
  Country: None (occurrence: None)
  Receive Date: 20051215
  Receipt Date: 20040303
  Transmission Date: 20060501
  Serious: Yes (Other)
  Sender: FDA-Public Use
  Company Number: US-GLAXOSMITHKLINE-A0501025A

PATIENT
  Age: 61 Year
  Sex: Male

DRUGS (4)
  1. ADVAIR DISKUS 250/50 [Suspect]
     Route: 055
  2. FLOVENT [Suspect]
     Indication: DRUG USE FOR UNKNOWN INDICATION
     Dosage: 1PUFF TWICE PER DAY
     Route: 055
     Dates: start: 20051101
  3. ALBUTEROL [Concomitant]
     Route: 055
  4. NASONEX [Concomitant]

REACTIONS (5)
  - ASTHMA [None]
  - CHEST DISCOMFORT [None]
  - DYSPEPSIA [None]
  - NASAL POLYPS [None]
  - WHEEZING [None]
